FAERS Safety Report 11547916 (Version 1)
Quarter: 2015Q3

REPORT INFORMATION
  Report Type: Spontaneous
  Country: US (occurrence: US)
  Receive Date: 20150903
  Receipt Date: 20150903
  Transmission Date: 20151125
  Serious: No
  Sender: FDA-Public Use
  Company Number: US-ELI_LILLY_AND_COMPANY-US201103003393

PATIENT
  Age: 55 Year
  Sex: Female

DRUGS (7)
  1. HUMALOG [Suspect]
     Active Substance: INSULIN LISPRO
     Dosage: 45 U, BID
  2. HUMALOG [Suspect]
     Active Substance: INSULIN LISPRO
     Dosage: 45 U, BID
  3. HUMALOG MIX75/25 [Suspect]
     Active Substance: INSULIN LISPRO
     Indication: DIABETES MELLITUS
     Dosage: 45 U, 2/D
     Dates: start: 201003
  4. HUMALOG MIX75/25 [Suspect]
     Active Substance: INSULIN LISPRO
     Dosage: 45 U, 2/D
     Dates: start: 201003
  5. HUMALOG MIX75/25 [Suspect]
     Active Substance: INSULIN LISPRO
     Dosage: 45 U, 2/D
     Dates: start: 201003
  6. LEVEMIR [Concomitant]
     Active Substance: INSULIN DETEMIR
  7. SYNTHROID [Concomitant]
     Active Substance: LEVOTHYROXINE SODIUM
     Indication: THYROID DISORDER

REACTIONS (14)
  - Nausea [Unknown]
  - Chest pain [Unknown]
  - Drug dose omission [Unknown]
  - Feeling abnormal [Unknown]
  - Fall [Recovered/Resolved]
  - Blood glucose increased [Unknown]
  - Injury [Recovered/Resolved]
  - Malaise [Unknown]
  - Stress [Unknown]
  - Carpal tunnel syndrome [Recovered/Resolved]
  - Glycosylated haemoglobin increased [Unknown]
  - Sensation of foreign body [Unknown]
  - Blood glucose increased [Recovered/Resolved]
  - Weight increased [Unknown]

NARRATIVE: CASE EVENT DATE: 20101203
